FAERS Safety Report 10654673 (Version 1)
Quarter: 2014Q4

REPORT INFORMATION
  Report Type: Spontaneous
  Country: US (occurrence: US)
  Receive Date: 20141216
  Receipt Date: 20141216
  Transmission Date: 20150529
  Serious: No
  Sender: FDA-Public Use
  Company Number: US-BAYER-2014-180532

PATIENT
  Age: 43 Year
  Sex: Female

DRUGS (2)
  1. CIPRO [Suspect]
     Active Substance: CIPROFLOXACIN HYDROCHLORIDE
     Indication: ANIMAL BITE
     Dosage: 500 MG, BID
     Dates: start: 20141123, end: 20141129
  2. METRONIDAZOLE. [Suspect]
     Active Substance: METRONIDAZOLE
     Dosage: 500 MG, TID

REACTIONS (3)
  - Nausea [None]
  - Insomnia [None]
  - Blood pressure increased [None]
